FAERS Safety Report 6801644-X (Version None)
Quarter: 2010Q2

REPORT INFORMATION
  Report Type: 
  Country: None (occurrence: None)
  Receive Date: 20100629
  Receipt Date: 20100217
  Transmission Date: 20101027
  Serious: Yes (Other)
  Sender: FDA-Public Use
  Company Number: US-ASTRAZENECA-2008UW12263

PATIENT
  Age: 47 Year
  Sex: Female
  Weight: 83 kg

DRUGS (14)
  1. SEROQUEL [Suspect]
     Indication: BIPOLAR DISORDER
     Dosage: 25 MG, 100 MG
     Route: 048
     Dates: start: 20020101, end: 20060201
  2. SEROQUEL [Suspect]
     Route: 048
     Dates: start: 20040209
  3. LITHIUM [Concomitant]
  4. DIAZEPAM [Concomitant]
     Dates: start: 20040209
  5. LEXAPRO [Concomitant]
     Dates: start: 20040209
  6. NABUMETONE [Concomitant]
     Dates: start: 20040218
  7. LEVOXYL [Concomitant]
     Dosage: 150 MCG DAILY, 175 MCG DISPENSED
     Dates: start: 20040218
  8. METOPROLOL [Concomitant]
     Dates: start: 20040228
  9. TRICOR [Concomitant]
     Dosage: 145 MG DAILY, 160 MG DISPENSED
     Dates: start: 20040228
  10. PLAVIX [Concomitant]
     Dates: start: 20040305
  11. ASPIRIN [Concomitant]
     Dates: start: 20060609
  12. LIPITOR [Concomitant]
     Dates: start: 20060609
  13. BEXTRA [Concomitant]
     Dates: start: 20040305
  14. LOVASTATIN [Concomitant]
     Dates: start: 20040309

REACTIONS (17)
  - BACK PAIN [None]
  - BLOOD CHOLESTEROL INCREASED [None]
  - BLOOD PRESSURE ABNORMAL [None]
  - CARDIAC DISORDER [None]
  - CARDIOVASCULAR DISORDER [None]
  - DEPRESSION [None]
  - FATIGUE [None]
  - HEADACHE [None]
  - HYPERPROLACTINAEMIA [None]
  - HYPERTENSION [None]
  - HYPERTHYROIDISM [None]
  - HYPOTHYROIDISM [None]
  - MYOCARDIAL INFARCTION [None]
  - NASOPHARYNGITIS [None]
  - PAIN [None]
  - THYROID DISORDER [None]
  - TYPE 2 DIABETES MELLITUS [None]
